FAERS Safety Report 9463631 (Version 2)
Quarter: 2013Q3

REPORT INFORMATION
  Report Type: Report from Study
  Country: US (occurrence: US)
  Receive Date: 20130819
  Receipt Date: 20130819
  Transmission Date: 20140515
  Serious: Yes (Hospitalization, Disabling, Other)
  Sender: FDA-Public Use
  Company Number: PHEH2013US013460

PATIENT
  Age: 78 Year
  Sex: Female
  Weight: 60.32 kg

DRUGS (7)
  1. AFINITOR [Suspect]
     Indication: BREAST CANCER
     Dosage: 10 MG, DAILY
     Route: 048
     Dates: start: 20130305, end: 20130521
  2. AFINITOR [Suspect]
     Dosage: 7.5 MG, QD
     Route: 048
     Dates: start: 20130617, end: 20130701
  3. EXEMESTANE [Suspect]
     Indication: BREAST CANCER
  4. PERCOCET [Concomitant]
  5. MARINOL [Concomitant]
     Indication: DECREASED APPETITE
  6. PROCHLORPERAZINE [Concomitant]
  7. LASIX [Concomitant]

REACTIONS (8)
  - Abdominal hernia [Unknown]
  - Abdominal pain [Unknown]
  - Epistaxis [Recovered/Resolved]
  - Headache [Unknown]
  - Local swelling [Unknown]
  - Thrombocytopenia [Recovered/Resolved]
  - Feeling hot [Unknown]
  - Cellulitis [Unknown]
